FAERS Safety Report 9500722 (Version 1)
Quarter: 2013Q1

REPORT INFORMATION
  Report Type: Spontaneous
  Country: US (occurrence: None)
  Receive Date: 20130107
  Receipt Date: 20130107
  Transmission Date: 20140127
  Serious: No
  Sender: FDA-Public Use
  Company Number: PHEH2012US017284

PATIENT
  Age: 56 Year
  Sex: Female

DRUGS (3)
  1. GILENYA (FTY) CAPSULE, 0.5MG [Suspect]
     Indication: MULTIPLE SCLEROSIS
     Route: 048
     Dates: start: 20120818
  2. ZYRTEC (CETIRIZINE HYDROCHLORIDE) [Concomitant]
  3. EFFEXOR-XR (VENLAFAXINE HYDROCHLORIDE) [Concomitant]

REACTIONS (7)
  - Toothache [None]
  - Insomnia [None]
  - Upper respiratory tract infection [None]
  - Nasopharyngitis [None]
  - Rhinorrhoea [None]
  - Nasal congestion [None]
  - Dyspnoea [None]
